FAERS Safety Report 6098354-6 (Version None)
Quarter: 2009Q1

REPORT INFORMATION
  Report Type: 
  Country: None (occurrence: None)
  Receive Date: 20090302
  Receipt Date: 20090225
  Transmission Date: 20090719
  Serious: Yes (Hospitalization)
  Sender: FDA-Public Use
  Company Number: FR-SP-2008-03251

PATIENT
  Age: 60 Year
  Sex: Male

DRUGS (6)
  1. IMMUCYST [Suspect]
     Indication: URINARY BLADDER POLYP
     Route: 043
     Dates: start: 20080909
  2. STAGID [Concomitant]
     Dosage: 1.5/DAY
     Route: 048
  3. CRESTOR [Concomitant]
     Route: 048
  4. KENZEN [Concomitant]
     Route: 048
  5. LEVEMIR [Concomitant]
  6. NOVORAPID [Concomitant]

REACTIONS (4)
  - BOVINE TUBERCULOSIS [None]
  - CHILLS [None]
  - PANCYTOPENIA [None]
  - PYREXIA [None]
